FAERS Safety Report 23219067 (Version 2)
Quarter: 2023Q4

REPORT INFORMATION
  Report Type: Spontaneous
  Country: US (occurrence: US)
  Receive Date: 20231122
  Receipt Date: 20231122
  Transmission Date: 20240110
  Serious: No
  Sender: FDA-Public Use
  Company Number: US-NOVOPROD-1090875

PATIENT
  Age: 24 Year
  Sex: Female

DRUGS (2)
  1. FIASP [Suspect]
     Active Substance: INSULIN ASPART
     Indication: Type 1 diabetes mellitus
     Dosage: 2-4MG WITH EACH MEAL DAILY
     Route: 058
     Dates: start: 20230208, end: 20230331
  2. FIASP [Suspect]
     Active Substance: INSULIN ASPART
     Indication: Type 1 diabetes mellitus
     Dosage: 2-4MG WITH EACH MEAL DAILY
     Route: 058
     Dates: start: 20230401, end: 20230613

REACTIONS (2)
  - Headache [Unknown]
  - Liquid product physical issue [Not Recovered/Not Resolved]
